FAERS Safety Report 20895642 (Version 1)
Quarter: 2022Q2

REPORT INFORMATION
  Report Type: Spontaneous
  Country: US (occurrence: None)
  Receive Date: 20220531
  Receipt Date: 20220531
  Transmission Date: 20220720
  Serious: Yes (Hospitalization)
  Sender: FDA-Public Use
  Company Number: US-ROCHE-3105112

PATIENT
  Age: 69 Year
  Sex: Female

DRUGS (1)
  1. XOFLUZA [Suspect]
     Active Substance: BALOXAVIR MARBOXIL
     Indication: Influenza
     Dosage: XOFLUZA 40 MG BLISTER PACK: TAKE 2 TABLETS BY MOUTH AS DIRECTED, QTY 1, ONGOING NO
     Route: 048
     Dates: start: 20220524, end: 20220525

REACTIONS (2)
  - Product dispensing error [Unknown]
  - COVID-19 [Not Recovered/Not Resolved]

NARRATIVE: CASE EVENT DATE: 20220524
